FAERS Safety Report 8370604-2 (Version None)
Quarter: 2012Q2

REPORT INFORMATION
  Report Type: 
  Country: None (occurrence: None)
  Receive Date: 20120518
  Receipt Date: 20120511
  Transmission Date: 20120825
  Serious: Yes (Hospitalization)
  Sender: FDA-Public Use
  Company Number: US-ABBOTT-12P-163-0912252-00

PATIENT
  Sex: Female
  Weight: 105.78 kg

DRUGS (2)
  1. LUPRON DEPOT [Suspect]
     Indication: MIGRAINE
  2. LUPRON DEPOT [Suspect]
     Indication: POLYCYSTIC OVARIES
     Route: 030
     Dates: start: 20111101, end: 20120301

REACTIONS (1)
  - BLOOD OESTROGEN INCREASED [None]
